FAERS Safety Report 23203075 (Version 1)
Quarter: 2023Q4

REPORT INFORMATION
  Report Type: Other
  Country: ES (occurrence: ES)
  Receive Date: 20231120
  Receipt Date: 20231120
  Transmission Date: 20240109
  Serious: Yes (Hospitalization)
  Sender: FDA-Public Use
  Company Number: None

PATIENT
  Age: 85 Year
  Sex: Female

DRUGS (12)
  1. COLCHICINE [Suspect]
     Active Substance: COLCHICINE
     Indication: Gouty arthritis
     Dosage: 0.5 MILLIGRAM, QD, EVERY 24 HOURS
     Route: 048
     Dates: start: 20230412, end: 20230415
  2. OMNIPAQUE [Suspect]
     Active Substance: IOHEXOL
     Indication: Scan with contrast
     Dosage: 100 MILLILITER, 1 BOTTLE
     Route: 042
     Dates: start: 20230405
  3. BISOPROLOL FUMARATE [Concomitant]
     Active Substance: BISOPROLOL FUMARATE
     Indication: Atrial fibrillation
     Dosage: 2.5 MILLIGRAM, DE, 28 TABLETS
     Route: 048
     Dates: start: 20221118
  4. Lundeos [Concomitant]
     Indication: Vitamin D
     Dosage: 20000 INTERNATIONAL UNIT, EVERY 14 DAYS, 5 CAPSULES
     Route: 048
     Dates: start: 20230512
  5. FUROSEMIDE [Concomitant]
     Active Substance: FUROSEMIDE
     Indication: Cardiac failure
     Dosage: 40 MILLIGRAM, 30 TABLETS
     Route: 048
     Dates: start: 20220129
  6. CHOLECALCIFEROL [Concomitant]
     Active Substance: CHOLECALCIFEROL
     Indication: Vitamin D
     Dosage: 25000 INTERNATIONAL UNIT, EVERY 15 DAYS, 4 CAPSULES
     Route: 048
     Dates: start: 20231027
  7. FEBUXOSTAT [Concomitant]
     Active Substance: FEBUXOSTAT
     Indication: Gout
     Dosage: 80 MILLIGRAM, EVERY 48 HOURS, 28 TABLETS
     Route: 048
     Dates: start: 20230421
  8. Atorduo [Concomitant]
     Indication: Hypercholesterolaemia
     Dosage: QD, 1.0 CAPS EVERY 24 HOURS, 30 CAPSULES
     Route: 048
     Dates: start: 20230610
  9. ACETAMINOPHEN [Concomitant]
     Active Substance: ACETAMINOPHEN
     Indication: Spinal osteoarthritis
     Dosage: 1 GRAM, EVERY 12 HRS, 40 TABLETS
     Route: 048
     Dates: start: 20200928
  10. SINTROM [Concomitant]
     Active Substance: ACENOCOUMAROL
     Indication: Atrial fibrillation
     Dosage: 2 MILLIGRAM, CE, 20 TABLETS
     Route: 048
     Dates: start: 20150714
  11. OMEPRAZOLE MAGNESIUM [Concomitant]
     Active Substance: OMEPRAZOLE MAGNESIUM
     Indication: Osteoarthritis
     Dosage: 20 MILLIGRAM, A-DE, 56 CAPSULES
     Route: 048
     Dates: start: 20220129
  12. POTASSIUM CHLORIDE [Concomitant]
     Active Substance: POTASSIUM CHLORIDE
     Indication: Hypokalaemia
     Dosage: 8 MEQ, 60 CAPSULES
     Route: 048
     Dates: start: 20230420

REACTIONS (1)
  - Acute kidney injury [Recovered/Resolved]

NARRATIVE: CASE EVENT DATE: 20230413
